FAERS Safety Report 6812097-X (Version None)
Quarter: 2010Q2

REPORT INFORMATION
  Report Type: 
  Country: None (occurrence: None)
  Receive Date: 20100629
  Receipt Date: 20100611
  Transmission Date: 20101027
  Serious: Yes (Hospitalization)
  Sender: FDA-Public Use
  Company Number: 2010002399

PATIENT
  Age: 69 Year
  Sex: Male

DRUGS (12)
  1. ERLOTINIB (ERLOTINIB) (TABLET) (ERLOTINIB) [Suspect]
     Indication: PANCREATIC CARCINOMA METASTATIC
     Dosage: (100 MG, QD), ORAL
     Route: 048
     Dates: start: 20091210
  2. GEMCITABINE [Suspect]
     Indication: PANCREATIC CARCINOMA METASTATIC
     Dosage: (1600 MG, Q1W), INTRAVEOUS
     Route: 042
     Dates: start: 20091210
  3. LIV.52 [Concomitant]
  4. DROTAVERINE (DROTAVERINE) [Concomitant]
  5. HEPATIL (ORNITHINE ASPARTATE) [Concomitant]
  6. BISOPROLOL FUMARATE [Concomitant]
  7. PRESTARIUM (PERINDOPRIL) [Concomitant]
  8. CONTOLOC (PANTOPRAZOLE) [Concomitant]
  9. NITRENDIPINE (NITRENDIPINE) [Concomitant]
  10. INSULIN (INSULIN) [Concomitant]
  11. TRAMADOL HYDROHLORIDE [Concomitant]
  12. KETOPROFEN [Concomitant]

REACTIONS (15)
  - ALANINE AMINOTRANSFERASE INCREASED [None]
  - ANAEMIA [None]
  - ASPARTATE AMINOTRANSFERASE INCREASED [None]
  - BLOOD BILIRUBIN INCREASED [None]
  - DEVICE OCCLUSION [None]
  - EOSINOPHIL COUNT DECREASED [None]
  - GAMMA-GLUTAMYLTRANSFERASE INCREASED [None]
  - JAUNDICE [None]
  - MALIGNANT NEOPLASM PROGRESSION [None]
  - MONOCYTE COUNT INCREASED [None]
  - NEUTROPHIL PERCENTAGE INCREASED [None]
  - PANCREATIC CARCINOMA METASTATIC [None]
  - PLATELET COUNT DECREASED [None]
  - PLATELET COUNT INCREASED [None]
  - PYREXIA [None]
